FAERS Safety Report 5714809-5 (Version None)
Quarter: 2008Q2

REPORT INFORMATION
  Report Type: 
  Country: None (occurrence: None)
  Receive Date: 20080423
  Receipt Date: 20071016
  Transmission Date: 20081010
  Serious: Yes (Death, Other)
  Sender: FDA-Public Use
  Company Number: ZA-ROCHE-527682

PATIENT
  Age: 24 Year
  Sex: Female

DRUGS (3)
  1. PYRIMETHAMINE/SULFADOXINE [Suspect]
     Indication: MALARIA
     Dosage: SINGLE DOSE OF SULFADOXINE/PYRIMETHAMINE, PER DAILY DOSE FOR 3 DAYS OF ARTESUNATE
     Route: 065
  2. PYRIMETHAMINE/SULFADOXINE [Suspect]
     Dosage: SINGLE DOSE OF SULFADOXINE/PYRIMETHAMINE, PER DAILY DOSE FOR 3 DAYS OF ARTESUNATE
     Route: 065
  3. ARTESUNATE [Suspect]
     Indication: MALARIA
     Dosage: DAILY DOSE FOR 3 DAYS, PER SINGLE DOSE OF SULFADOXINE/PYRIMETHAMINE
     Route: 065

REACTIONS (2)
  - DEATH [None]
  - HAEMATURIA [None]
